FAERS Safety Report 4859532-4 (Version None)
Quarter: 2005Q4

REPORT INFORMATION
  Report Type: 
  Country: None (occurrence: None)
  Receive Date: 20051219
  Receipt Date: 20050621
  Transmission Date: 20060501
  Serious: No
  Sender: FDA-Public Use
  Company Number: US-GLAXOSMITHKLINE-A0563523A

PATIENT
  Age: 56 Year
  Sex: Female

DRUGS (3)
  1. NICODERM CQ [Suspect]
     Dates: start: 20050609
  2. NICODERM 7MG (RX) [Suspect]
     Route: 062
     Dates: start: 20050601
  3. XANAX [Concomitant]

REACTIONS (5)
  - ANXIETY [None]
  - HEADACHE [None]
  - INSOMNIA [None]
  - NERVOUSNESS [None]
  - NICOTINE DEPENDENCE [None]
